FAERS Safety Report 22304811 (Version 2)
Quarter: 2023Q2

REPORT INFORMATION
  Report Type: Spontaneous
  Country: US (occurrence: US)
  Receive Date: 20230510
  Receipt Date: 20230621
  Transmission Date: 20230721
  Serious: Yes (Other)
  Sender: FDA-Public Use
  Company Number: US-PFIZER INC-PV202200120833

PATIENT
  Age: 84 Year
  Sex: Female
  Weight: 45.351 kg

DRUGS (2)
  1. IBRANCE [Suspect]
     Active Substance: PALBOCICLIB
     Indication: Breast cancer female
     Dosage: 100 MG
  2. IBRANCE [Suspect]
     Active Substance: PALBOCICLIB
     Dosage: QD X21 DAYS ON, 7 DAYS OFF
     Route: 048

REACTIONS (2)
  - Neutropenia [Unknown]
  - Full blood count abnormal [Unknown]
